FAERS Safety Report 14991605 (Version 4)
Quarter: 2018Q2

REPORT INFORMATION
  Report Type: Spontaneous
  Country: CZ (occurrence: CZ)
  Receive Date: 20180608
  Receipt Date: 20180626
  Transmission Date: 20180711
  Serious: Yes (Death)
  Sender: FDA-Public Use
  Company Number: CZ-ALLERGAN-1829820US

PATIENT
  Age: 80 Year
  Sex: Male

DRUGS (11)
  1. VANCOMYCINE [Concomitant]
     Active Substance: VANCOMYCIN
     Dosage: UNK
     Dates: start: 201805
  2. ENOXAPARIN [Concomitant]
     Active Substance: ENOXAPARIN
  3. FUROSEMIDE. [Concomitant]
     Active Substance: FUROSEMIDE
  4. MORPHINE [Concomitant]
     Active Substance: MORPHINE
  5. PREGABALIN. [Concomitant]
     Active Substance: PREGABALIN
  6. CEFTAROLINE FOSAMIL - BP [Suspect]
     Active Substance: CEFTAROLINE FOSAMIL
     Indication: PRODUCT USED FOR UNKNOWN INDICATION
     Dosage: 400 MG, BID
     Route: 042
     Dates: start: 20180522, end: 20180529
  7. METOPROLOL. [Concomitant]
     Active Substance: METOPROLOL
  8. TRAMADOL. [Concomitant]
     Active Substance: TRAMADOL
  9. TIAPRID [Concomitant]
     Active Substance: TIAPRIDE HYDROCHLORIDE
  10. INSULIN [Concomitant]
     Active Substance: INSULIN NOS
     Route: 042
  11. POTASSIUM [Concomitant]
     Active Substance: POTASSIUM

REACTIONS (1)
  - Multiple organ dysfunction syndrome [Fatal]
